FAERS Safety Report 18540436 (Version 3)
Quarter: 2021Q1

REPORT INFORMATION
  Report Type: Spontaneous
  Country: US (occurrence: US)
  Receive Date: 20201124
  Receipt Date: 20210119
  Transmission Date: 20210419
  Serious: No
  Sender: FDA-Public Use
  Company Number: US-PFIZER INC-2020458999

PATIENT
  Age: 70 Year
  Sex: Female
  Weight: 79.92 kg

DRUGS (3)
  1. ZIRABEV [Suspect]
     Active Substance: BEVACIZUMAB-BVZR
     Indication: OVARIAN CANCER
     Dosage: UNK, EVERY 3 WEEKS
     Dates: start: 20201007
  2. ZIRABEV [Suspect]
     Active Substance: BEVACIZUMAB-BVZR
     Dosage: 1198.5 MG, EVERY 3 WEEKS
     Dates: start: 20201118
  3. ZOFRAN [Concomitant]
     Active Substance: ONDANSETRON HYDROCHLORIDE
     Indication: OVARIAN CANCER
     Dosage: 4 MG, 3X/DAY AS NEEDED
     Route: 048

REACTIONS (3)
  - Palpitations [Unknown]
  - Hypertension [Unknown]
  - Off label use [Unknown]

NARRATIVE: CASE EVENT DATE: 20201007
